FAERS Safety Report 13896882 (Version 13)
Quarter: 2021Q4

REPORT INFORMATION
  Report Type: Spontaneous
  Country: NO (occurrence: NO)
  Receive Date: 20170823
  Receipt Date: 20211213
  Transmission Date: 20220303
  Serious: Yes (Disabling, Other)
  Sender: FDA-Public Use
  Company Number: NO-KOREA IPSEN PHARMA-2017-09375

PATIENT
  Age: 42 Year
  Sex: Female

DRUGS (3)
  1. BOTULINUM TOXIN TYPE A [Suspect]
     Active Substance: BOTULINUM TOXIN TYPE A
     Indication: Skin wrinkling
     Dosage: 37.25 UNITS
     Route: 030
     Dates: start: 20150414, end: 20150414
  2. BOTULINUM TOXIN TYPE A [Suspect]
     Active Substance: BOTULINUM TOXIN TYPE A
     Indication: Skin wrinkling
     Dosage: 4 UNITS
     Route: 030
     Dates: start: 20150428, end: 20150428
  3. BOTULINUM TOXIN TYPE A [Suspect]
     Active Substance: BOTULINUM TOXIN TYPE A
     Indication: Off label use
     Dosage: 34 IU
     Route: 065
     Dates: start: 20200414, end: 20200414

REACTIONS (24)
  - Facial paralysis [Not Recovered/Not Resolved]
  - Nerve injury [Unknown]
  - Seizure [Unknown]
  - Vth nerve injury [Not Recovered/Not Resolved]
  - Facial pain [Recovering/Resolving]
  - Facial asymmetry [Not Recovered/Not Resolved]
  - Discomfort [Unknown]
  - Pain [Not Recovered/Not Resolved]
  - Muscle spasms [Recovering/Resolving]
  - Sleep disorder [Unknown]
  - Migraine [Recovering/Resolving]
  - Dysphagia [Recovering/Resolving]
  - Ear pain [Unknown]
  - Loss of personal independence in daily activities [Unknown]
  - Dystonia [Unknown]
  - Headache [Unknown]
  - Eyelid ptosis [Unknown]
  - Fatigue [Unknown]
  - Muscular weakness [Recovering/Resolving]
  - Vomiting [Unknown]
  - Inappropriate schedule of product administration [Unknown]
  - Off label use [Unknown]
  - Product preparation issue [Unknown]
  - Wrong technique in product usage process [Unknown]

NARRATIVE: CASE EVENT DATE: 20150101
